FAERS Safety Report 6838638-4 (Version None)
Quarter: 2010Q3

REPORT INFORMATION
  Report Type: 
  Country: None (occurrence: None)
  Receive Date: 20100713
  Receipt Date: 20070606
  Transmission Date: 20110219
  Serious: No
  Sender: FDA-Public Use
  Company Number: US-PFIZER INC-2007043690

PATIENT
  Sex: Female
  Weight: 54.4 kg

DRUGS (9)
  1. CHANTIX [Suspect]
     Indication: SMOKING CESSATION THERAPY
     Dates: start: 20070501
  2. GEODON [Concomitant]
     Indication: BIPOLAR DISORDER
  3. POTASSIUM CITRATE [Concomitant]
  4. KLONOPIN [Concomitant]
  5. TOPROL-XL [Concomitant]
  6. CRESTOR [Concomitant]
  7. MULTI-VITAMINS [Concomitant]
  8. VITAMIN B-12 [Concomitant]
  9. IBANDRONATE SODIUM [Concomitant]

REACTIONS (2)
  - NAUSEA [None]
  - VOMITING [None]
